FAERS Safety Report 4316462-4 (Version None)
Quarter: 2004Q1

REPORT INFORMATION
  Report Type: 
  Country: None (occurrence: None)
  Receive Date: 20040311
  Receipt Date: 20040220
  Transmission Date: 20041129
  Serious: Yes (Life-Threatening, Hospitalization)
  Sender: FDA-Public Use
  Company Number: DE-JNJFOC-20030705023

PATIENT
  Age: 40 Year
  Sex: Male

DRUGS (4)
  1. DURAGESIC [Suspect]
     Indication: PAIN
     Dosage: PATIENT INJECTED BOTH IM AND IV CONTENTS OF PATCHES
  2. HEROINE (DIAMORPHINE) [Concomitant]
  3. VALORON (DROPS) VALORON N [Concomitant]
  4. POLAMIDON (METHADONE HYDROCHLORIDE) [Concomitant]

REACTIONS (4)
  - ABSCESS LIMB [None]
  - INTENTIONAL MISUSE [None]
  - MEDICATION ERROR [None]
  - MULTI-ORGAN FAILURE [None]
